FAERS Safety Report 5630670-1 (Version None)
Quarter: 2008Q1

REPORT INFORMATION
  Report Type: 
  Country: None (occurrence: None)
  Receive Date: 20080214
  Receipt Date: 20080204
  Transmission Date: 20080703
  Serious: Yes (Death)
  Sender: FDA-Public Use
  Company Number: 2008-01141

PATIENT
  Age: 58 Year
  Sex: Female

DRUGS (8)
  1. FIORICET [Suspect]
  2. DIPHENHYDRAMINE HCL [Suspect]
  3. METOPROLOL (WATSON LABORATORIES)(METOPROLOL TATRATE) TABLET [Suspect]
  4. ALPRAZOLAM [Suspect]
  5. HYDROCODONE BITARTRATE + ACETAMINOPHEN [Suspect]
  6. METHADONE HCL [Suspect]
  7. SKELETAL MUSCLE RELAXANTS() [Suspect]
  8. ETHANOL(ETHANOL) [Suspect]

REACTIONS (1)
  - DEATH [None]
